FAERS Safety Report 4491660-8 (Version None)
Quarter: 2004Q4

REPORT INFORMATION
  Report Type: 
  Country: None (occurrence: None)
  Receive Date: 20041103
  Receipt Date: 20041022
  Transmission Date: 20050328
  Serious: Yes (Disabling)
  Sender: FDA-Public Use
  Company Number: SE-BRISTOL-MYERS SQUIBB COMPANY-12740031

PATIENT
  Sex: Female

DRUGS (3)
  1. AMIKACIN SULFATE [Suspect]
     Dosage: DOSE WAS HALVED AFTER ONSET OF TINNITUS
     Route: 051
     Dates: start: 20031001, end: 20040910
  2. ANSATIPINE [Concomitant]
  3. MYAMBUTOL [Concomitant]

REACTIONS (1)
  - TINNITUS [None]
